FAERS Safety Report 5216334-7 (Version None)
Quarter: 2006Q4

REPORT INFORMATION
  Report Type: 
  Country: None (occurrence: None)
  Receive Date: 20061122
  Receipt Date: 20060725
  Transmission Date: 20070319
  Serious: Yes (Other)
  Sender: FDA-Public Use
  Company Number: 2006091685

PATIENT
  Age: 75 Year
  Sex: Female
  Weight: 68.0396 kg

DRUGS (6)
  1. LIPITOR [Suspect]
     Indication: LOW DENSITY LIPOPROTEIN INCREASED
     Dosage: 1 YEAR AGO - STOPPED
  2. FOLIC ACID [Concomitant]
  3. ASPIRIN [Concomitant]
  4. PLAVIX [Concomitant]
  5. TOPROL-XL [Concomitant]
  6. CALCIUM [Concomitant]

REACTIONS (1)
  - BLOOD CREATINE PHOSPHOKINASE INCREASED [None]
